FAERS Safety Report 23541955 (Version 1)
Quarter: 2024Q1

REPORT INFORMATION
  Report Type: Spontaneous
  Country: FR (occurrence: FR)
  Receive Date: 20240220
  Receipt Date: 20240220
  Transmission Date: 20240410
  Serious: Yes (Hospitalization)
  Sender: FDA-Public Use
  Company Number: FR-SUN PHARMACEUTICAL INDUSTRIES LTD-2024RR-432334

PATIENT
  Age: 58 Year
  Sex: Male
  Weight: 83 kg

DRUGS (7)
  1. GEMCITABINE [Suspect]
     Active Substance: GEMCITABINE
     Indication: Cholangiocarcinoma
     Dosage: 1939 MILLIGRAM, 1DOSE/1CYCLIC
     Route: 040
     Dates: start: 20231010, end: 20231017
  2. ACETAMINOPHEN [Suspect]
     Active Substance: ACETAMINOPHEN
     Indication: Product used for unknown indication
     Dosage: 1 GRAM, TOTAL 1
     Route: 048
     Dates: start: 20231015, end: 20231015
  3. CISPLATIN [Suspect]
     Active Substance: CISPLATIN
     Indication: Cholangiocarcinoma
     Dosage: 49 MILLIGRAM, 1DOSE/1CYCLIC
     Route: 040
     Dates: start: 20231010, end: 20231017
  4. FUROSEMIDE [Suspect]
     Active Substance: FUROSEMIDE
     Indication: Oedema peripheral
     Dosage: 40 MILLIGRAM, IN TOTAL
     Route: 048
     Dates: start: 20231018, end: 20231018
  5. IMFINZI [Suspect]
     Active Substance: DURVALUMAB
     Indication: Cholangiocarcinoma
     Dosage: 1500 MILLIGRAM, IN TOAL
     Route: 040
     Dates: start: 20231010, end: 20231010
  6. PREDNISOLONE [Suspect]
     Active Substance: PREDNISOLONE
     Indication: Premedication
     Dosage: 80 MILLIGRAM, 1DOSE/1CYCLIC
     Route: 048
     Dates: start: 20231010, end: 20231017
  7. ONDANSETRON [Suspect]
     Active Substance: ONDANSETRON
     Indication: Premedication
     Dosage: 8 MILLIGRAM, 1DOSE/1CYCLIC
     Route: 048
     Dates: start: 20231010, end: 20231017

REACTIONS (2)
  - Rash [Recovering/Resolving]
  - Hepatic cytolysis [Recovering/Resolving]

NARRATIVE: CASE EVENT DATE: 20231018
